FAERS Safety Report 20899119 (Version 1)
Quarter: 2022Q2

REPORT INFORMATION
  Report Type: Spontaneous
  Country: US (occurrence: US)
  Receive Date: 20220601
  Receipt Date: 20220601
  Transmission Date: 20220721
  Serious: Yes (Other)
  Sender: FDA-Public Use
  Company Number: US-AMGEN-USASP2022091289

PATIENT
  Sex: Male

DRUGS (2)
  1. REPATHA [Suspect]
     Active Substance: EVOLOCUMAB
     Indication: Blood cholesterol increased
     Dosage: 140 MILLIGRAM, Q2WK
     Route: 065
  2. REPATHA [Suspect]
     Active Substance: EVOLOCUMAB
     Indication: Hypercholesterolaemia

REACTIONS (8)
  - Carotid artery occlusion [Unknown]
  - Pneumothorax [Unknown]
  - Pneumonia [Unknown]
  - Thrombosis [Unknown]
  - Wrong technique in product usage process [Unknown]
  - Gout [Unknown]
  - Hypertension [Recovered/Resolved]
  - Injection site pain [Unknown]
